FAERS Safety Report 9547691 (Version 2)
Quarter: 2013Q3

REPORT INFORMATION
  Report Type: Report from Study
  Country: DE (occurrence: DE)
  Receive Date: 20130924
  Receipt Date: 20130924
  Transmission Date: 20140515
  Serious: Yes (Hospitalization, Other)
  Sender: FDA-Public Use
  Company Number: PHHY2013DE095718

PATIENT
  Age: 47 Year
  Sex: Female

DRUGS (7)
  1. FTY 720 [Suspect]
     Indication: MULTIPLE SCLEROSIS
     Dosage: 0.5 MG, QD
     Route: 048
     Dates: start: 20110905, end: 201306
  2. AMINEURIN [Concomitant]
     Dosage: 25 MG, QD
     Dates: start: 20090825
  3. CETIRIZIN [Concomitant]
     Dosage: 10 MG, QD
  4. CITALOPRAM [Concomitant]
     Dosage: 20 MG, QD
  5. CLEXANE [Concomitant]
     Dosage: 0.4 ML, QD
  6. VITAMIN B12 [Concomitant]
     Indication: PROPHYLACTIC CHEMOTHERAPY
     Dosage: 1000 UG, UNK
     Dates: start: 20130709
  7. FOLIC ACID [Concomitant]
     Indication: PROPHYLACTIC CHEMOTHERAPY
     Dosage: 0.4 MG, QD
     Dates: start: 20130626

REACTIONS (21)
  - Bronchial carcinoma [Not Recovered/Not Resolved]
  - Metastases to central nervous system [Not Recovered/Not Resolved]
  - Brain oedema [Unknown]
  - Vertigo [Recovering/Resolving]
  - Diplopia [Recovering/Resolving]
  - Dysarthria [Recovering/Resolving]
  - Dysphagia [Recovering/Resolving]
  - Hypoaesthesia [Recovering/Resolving]
  - Vision blurred [Recovering/Resolving]
  - Limb discomfort [Recovering/Resolving]
  - Asthenia [Recovering/Resolving]
  - Mammary duct ectasia [Unknown]
  - Metastases to lymph nodes [Unknown]
  - Metastases to lung [Unknown]
  - Breast cyst [Unknown]
  - Metastases to liver [Unknown]
  - Multiple sclerosis relapse [Unknown]
  - Central nervous system lesion [Unknown]
  - Vomiting [Recovering/Resolving]
  - Nausea [Recovering/Resolving]
  - Cough [Recovering/Resolving]
